FAERS Safety Report 6144458-9 (Version None)
Quarter: 2009Q2

REPORT INFORMATION
  Report Type: 
  Country: None (occurrence: None)
  Receive Date: 20090406
  Receipt Date: 20090323
  Transmission Date: 20091009
  Serious: Yes (Hospitalization, Other)
  Sender: FDA-Public Use
  Company Number: JP-ROCHE-624010

PATIENT
  Sex: Male

DRUGS (6)
  1. PEG-INTERFERON ALFA 2A (RO 25-8310) [Suspect]
     Indication: HEPATITIS C
     Route: 058
     Dates: start: 20070802, end: 20071003
  2. PEG-INTERFERON ALFA 2A (RO 25-8310) [Suspect]
     Route: 058
     Dates: start: 20071010
  3. RIBAVIRIN [Suspect]
     Route: 048
     Dates: start: 20070802
  4. URSO 250 [Concomitant]
     Dosage: FORM: ORAL FORMULATION (NOS)
     Route: 048
  5. ZANTAC [Concomitant]
     Route: 048
  6. MUCOSTA [Concomitant]
     Dosage: FORM: ORAL FORMULATION (NOS)
     Route: 048

REACTIONS (8)
  - BLADDER NEOPLASM [None]
  - HAEMOGLOBIN DECREASED [None]
  - HYPOTHYROIDISM [None]
  - INSOMNIA [None]
  - MALAISE [None]
  - NEUTROPHIL COUNT DECREASED [None]
  - PLATELET COUNT DECREASED [None]
  - WHITE BLOOD CELL COUNT DECREASED [None]
